FAERS Safety Report 5357990-2 (Version None)
Quarter: 2007Q2

REPORT INFORMATION
  Report Type: 
  Country: None (occurrence: None)
  Receive Date: 20070612
  Receipt Date: 20070601
  Transmission Date: 20071010
  Serious: Yes (Hospitalization)
  Sender: FDA-Public Use
  Company Number: 234453K07USA

PATIENT
  Age: 52 Year
  Sex: Male

DRUGS (6)
  1. REBIF [Suspect]
     Indication: MULTIPLE SCLEROSIS
     Dosage: SEE IMAGE
     Route: 058
     Dates: start: 20070201, end: 20070524
  2. REBIF [Suspect]
     Indication: MULTIPLE SCLEROSIS
     Dosage: SEE IMAGE
     Route: 058
     Dates: start: 20070601
  3. PREVACID [Concomitant]
  4. BACLOFEN [Concomitant]
  5. PAXIL [Concomitant]
  6. DETROL LA [Concomitant]

REACTIONS (2)
  - MALAISE [None]
  - PANCREATITIS VIRAL [None]
